FAERS Safety Report 17339663 (Version 1)
Quarter: 2020Q1

REPORT INFORMATION
  Report Type: Spontaneous
  Country: JP (occurrence: JP)
  Receive Date: 20200129
  Receipt Date: 20200129
  Transmission Date: 20200409
  Serious: Yes (Hospitalization)
  Sender: FDA-Public Use
  Company Number: JP-CELLTRION-2020-JP-000008

PATIENT
  Age: 50 Year
  Sex: Female

DRUGS (1)
  1. LAMOTRIGINE (NON-SPECIFIC) [Suspect]
     Active Substance: LAMOTRIGINE
     Indication: BIPOLAR DISORDER
     Dosage: 12.5 MG DAILY
     Route: 065

REACTIONS (3)
  - Hyponatraemia [Recovered/Resolved]
  - Stress cardiomyopathy [Recovered/Resolved]
  - Inappropriate antidiuretic hormone secretion [Recovered/Resolved]
